FAERS Safety Report 20689572 (Version 1)
Quarter: 2022Q2

REPORT INFORMATION
  Report Type: Spontaneous
  Country: JP (occurrence: JP)
  Receive Date: 20220408
  Receipt Date: 20220408
  Transmission Date: 20220721
  Serious: Yes (Other)
  Sender: FDA-Public Use
  Company Number: JP-NOVOPROD-907159

PATIENT
  Sex: Female

DRUGS (1)
  1. NOVOLIN R [Suspect]
     Active Substance: INSULIN HUMAN
     Indication: Product used for unknown indication
     Dosage: UNK (SEVERAL TIMES INTO THE ABDOMEN)
     Route: 058

REACTIONS (3)
  - Loss of consciousness [Recovered/Resolved]
  - Suicide attempt [Unknown]
  - Prescription drug used without a prescription [Unknown]
